FAERS Safety Report 6572419-4 (Version None)
Quarter: 2010Q1

REPORT INFORMATION
  Report Type: 
  Country: None (occurrence: None)
  Receive Date: 20100205
  Receipt Date: 20100129
  Transmission Date: 20100710
  Serious: Yes (Death, Hospitalization)
  Sender: FDA-Public Use
  Company Number: US-ELI_LILLY_AND_COMPANY-US201002000734

PATIENT
  Age: 86 Year
  Sex: Male

DRUGS (4)
  1. ALIMTA [Suspect]
     Indication: NON-SMALL CELL LUNG CANCER
     Dosage: UNK, UNKNOWN
     Route: 065
  2. CARBOPLATIN [Concomitant]
     Indication: NON-SMALL CELL LUNG CANCER
     Dosage: UNK, UNKNOWN
     Route: 065
  3. FOLIC ACID [Concomitant]
     Dosage: UNK, UNKNOWN
     Route: 042
  4. VITAMIN B-12 [Concomitant]
     Dosage: UNK, UNKNOWN

REACTIONS (3)
  - DEATH [None]
  - MUCOSAL INFLAMMATION [None]
  - PANCYTOPENIA [None]
